FAERS Safety Report 11198056 (Version 2)
Quarter: 2016Q1

REPORT INFORMATION
  Report Type: Report from Study
  Country: CA (occurrence: CA)
  Receive Date: 20150617
  Receipt Date: 20160217
  Transmission Date: 20160525
  Serious: Yes (Other)
  Sender: FDA-Public Use
  Company Number: CA-ROCHE-1566417

PATIENT
  Age: 70 Year
  Sex: Female

DRUGS (12)
  1. ASPIRIN. [Concomitant]
     Active Substance: ASPIRIN
  2. CLONAZEPAM. [Concomitant]
     Active Substance: CLONAZEPAM
  3. ELAVIL [Concomitant]
     Active Substance: AMITRIPTYLINE HYDROCHLORIDE
  4. OMEPRAZOLE. [Concomitant]
     Active Substance: OMEPRAZOLE
  5. QUETIAPINE [Concomitant]
     Active Substance: QUETIAPINE
  6. CIPRALEX [Concomitant]
     Active Substance: ESCITALOPRAM OXALATE
  7. ACTEMRA [Suspect]
     Active Substance: TOCILIZUMAB
     Indication: RHEUMATOID ARTHRITIS
     Route: 042
     Dates: start: 20150415, end: 20150514
  8. M-ESLON [Concomitant]
     Active Substance: MORPHINE SULFATE
  9. PREGABALIN. [Concomitant]
     Active Substance: PREGABALIN
  10. OXYGEN. [Concomitant]
     Active Substance: OXYGEN
     Route: 045
  11. TYLENOL WITH CODEINE [Concomitant]
     Active Substance: ACETAMINOPHEN\CODEINE PHOSPHATE
  12. ACTONEL [Concomitant]
     Active Substance: RISEDRONATE SODIUM

REACTIONS (14)
  - Dysphonia [Not Recovered/Not Resolved]
  - Asthenia [Unknown]
  - Asthenia [Not Recovered/Not Resolved]
  - Infusion site erythema [Unknown]
  - Heart rate increased [Unknown]
  - Dyspnoea [Unknown]
  - Rhinorrhoea [Recovered/Resolved]
  - Pain in extremity [Not Recovered/Not Resolved]
  - General physical health deterioration [Unknown]
  - Breast ulceration [Unknown]
  - Eye pain [Recovered/Resolved]
  - Arthralgia [Not Recovered/Not Resolved]
  - Productive cough [Not Recovered/Not Resolved]
  - Pneumonia [Unknown]

NARRATIVE: CASE EVENT DATE: 20150415
